FAERS Safety Report 8307576 (Version 7)
Quarter: 2013Q4

REPORT INFORMATION
  Report Type: Spontaneous
  Country: US (occurrence: US)
  Receive Date: 20111222
  Receipt Date: 20131101
  Transmission Date: 20140711
  Serious: Yes (Hospitalization, Other)
  Sender: FDA-Public Use
  Company Number: US-ROCHE-1023974

PATIENT
  Age: 30 Year
  Sex: Female
  Weight: 54.48 kg

DRUGS (1)
  1. ACCUTANE [Suspect]
     Indication: ACNE
     Route: 065
     Dates: start: 1994, end: 1995

REACTIONS (6)
  - Crohn^s disease [Unknown]
  - Depression [Unknown]
  - Inflammatory bowel disease [Unknown]
  - Injury [Unknown]
  - Colitis ulcerative [Unknown]
  - Colitis [Unknown]
